FAERS Safety Report 18655821 (Version 2)
Quarter: 2020Q4

REPORT INFORMATION
  Report Type: Spontaneous
  Country: US (occurrence: US)
  Receive Date: 20201223
  Receipt Date: 20201229
  Transmission Date: 20210114
  Serious: No
  Sender: FDA-Public Use
  Company Number: US-PFIZER INC-2020382113

PATIENT
  Age: 80 Year
  Sex: Female

DRUGS (1)
  1. IBRANCE [Suspect]
     Active Substance: PALBOCICLIB
     Indication: BREAST CANCER FEMALE
     Dosage: 75 MG, DAILY (7 DAYS ON THEN 7 DAYS OFF WITH FOOD)
     Route: 048
     Dates: start: 201911

REACTIONS (2)
  - Off label use [Unknown]
  - Neutrophil count abnormal [Unknown]
